FAERS Safety Report 10222127 (Version 1)
Quarter: 2014Q2

REPORT INFORMATION
  Report Type: Spontaneous
  Country: US (occurrence: None)
  Receive Date: 20140606
  Receipt Date: 20140606
  Transmission Date: 20141212
  Serious: Yes (Other)
  Sender: FDA-Public Use
  Company Number: None

PATIENT
  Age: 54 Year
  Sex: Female
  Weight: 79.38 kg

DRUGS (4)
  1. SYSTANE ULTRA [Suspect]
     Indication: EYE LUBRICATION THERAPY
     Dates: start: 20140605, end: 20140605
  2. FISH OIL [Concomitant]
  3. GRAPE SEED EXTRACT [Concomitant]
  4. B VITAMINS [Concomitant]

REACTIONS (3)
  - Eye pain [None]
  - Eye swelling [None]
  - Product formulation issue [None]
